FAERS Safety Report 7953277-X (Version None)
Quarter: 2011Q4

REPORT INFORMATION
  Report Type: 
  Country: None (occurrence: None)
  Receive Date: 20111201
  Receipt Date: 20111117
  Transmission Date: 20120403
  Serious: Yes (Other)
  Sender: FDA-Public Use
  Company Number: DE-MYLANLABS-2011S1023880

PATIENT
  Sex: Male

DRUGS (1)
  1. METOPROLOL [Suspect]
     Indication: HYPERTENSION
     Route: 048

REACTIONS (3)
  - DRUG INEFFECTIVE [None]
  - HYPERTENSION [None]
  - CHEST PAIN [None]
